FAERS Safety Report 16073669 (Version 3)
Quarter: 2019Q1

REPORT INFORMATION
  Report Type: Spontaneous
  Country: GB (occurrence: HU)
  Receive Date: 20190314
  Receipt Date: 20190328
  Transmission Date: 20190418
  Serious: Yes (Hospitalization)
  Sender: FDA-Public Use
  Company Number: HU-FRESENIUS KABI-FK201902428

PATIENT
  Age: 66 Year
  Sex: Male
  Weight: 73 kg

DRUGS (8)
  1. AVELUMAB [Suspect]
     Active Substance: AVELUMAB
     Indication: SQUAMOUS CELL CARCINOMA OF HEAD AND NECK
     Dosage: 850 MG, CYCLIC (DAY 1 OF LEAD-IN PH., DAYS 8-25-39 OF CRT PH, EVERY 2 WEEKS DURING MAINTENANCE PH)
     Route: 041
     Dates: start: 20181205, end: 20190107
  2. NO DRUG NAME [Suspect]
     Active Substance: UNSPECIFIED INGREDIENT
     Indication: SQUAMOUS CELL CARCINOMA OF HEAD AND NECK
     Dosage: 850 MG, CYCLIC (DAY 1 OF LEAD-IN PH., DAYS 8-25-39 OF CRT PH, EVERY 2 WEEKS DURING MAINTENANCE PH)
     Route: 041
     Dates: start: 20181205, end: 20190107
  3. FLUCONAZOLE. [Concomitant]
     Active Substance: FLUCONAZOLE
     Indication: FUNGAL INFECTION
     Dosage: 150 MG, 1X/DAY
     Route: 048
     Dates: start: 20190211, end: 20190214
  4. METHYLPREDNISOLONE. [Suspect]
     Active Substance: METHYLPREDNISOLONE
     Indication: TRACHEITIS
     Dosage: 4 MG, 2X/DAY
     Route: 048
     Dates: start: 20190119
  5. NO DRUG NAME [Suspect]
     Active Substance: UNSPECIFIED INGREDIENT
     Indication: SQUAMOUS CELL CARCINOMA OF HEAD AND NECK
     Dosage: 850 MG, CYCLIC (DAY 1 OF LEAD-IN PH., DAYS 8-25-39 OF CRT PH, EVERY 2 WEEKS DURING MAINTENANCE PH)
     Route: 041
     Dates: start: 20181205, end: 20190107
  6. CISPLATIN (MANUFACTURER UNKNOWN) [Suspect]
     Active Substance: CISPLATIN
     Indication: SQUAMOUS CELL CARCINOMA OF HEAD AND NECK
     Dosage: 145 MG, CYCLIC, REGIMEN: DAYS 1, 22, 43 OF CRT PHASE
     Route: 041
     Dates: start: 20181212, end: 20190109
  7. FENTANYL. [Concomitant]
     Active Substance: FENTANYL
     Indication: PAIN
     Dosage: 25 MG/H, 72 HOURS
     Route: 062
     Dates: start: 20181231
  8. PANTOPRAZOLE [Concomitant]
     Active Substance: PANTOPRAZOLE
     Indication: PROPHYLAXIS
     Route: 048
     Dates: start: 20190119

REACTIONS (2)
  - Pyrexia [Recovered/Resolved]
  - Hyperglycaemia [Recovered/Resolved]

NARRATIVE: CASE EVENT DATE: 20190220
